FAERS Safety Report 14749626 (Version 4)
Quarter: 2019Q4

REPORT INFORMATION
  Report Type: Report from Study
  Country: BR (occurrence: BR)
  Receive Date: 20180411
  Receipt Date: 20191218
  Transmission Date: 20200122
  Serious: Yes (Other)
  Sender: FDA-Public Use
  Company Number: BR-UCBSA-2017034341

PATIENT
  Sex: Female
  Weight: 63 kg

DRUGS (6)
  1. GABAPENTIN. [Concomitant]
     Active Substance: GABAPENTIN
     Indication: EPILEPSY
  2. LABIRIN [Concomitant]
     Active Substance: BETAHISTINE
     Indication: LABYRINTHITIS
  3. LEVETIRACETAM. [Suspect]
     Active Substance: LEVETIRACETAM
     Dosage: 250MG AND 750MG TWICE DAILY
     Route: 048
     Dates: start: 2017
  4. FRISIUM [Concomitant]
     Active Substance: CLOBAZAM
     Indication: EPILEPSY
  5. LEVETIRACETAM. [Suspect]
     Active Substance: LEVETIRACETAM
     Indication: EPILEPSY
     Dosage: UNK
     Route: 048
     Dates: start: 2017, end: 2017
  6. TRILEPTAL [Concomitant]
     Active Substance: OXCARBAZEPINE
     Indication: PRODUCT USED FOR UNKNOWN INDICATION
     Dosage: UNK

REACTIONS (9)
  - Unevaluable event [Not Recovered/Not Resolved]
  - Anxiety [Recovered/Resolved]
  - Skin wrinkling [Not Recovered/Not Resolved]
  - Thirst [Not Recovered/Not Resolved]
  - Skin discolouration [Not Recovered/Not Resolved]
  - Labyrinthitis [Recovered/Resolved]
  - Intraocular pressure increased [Recovered/Resolved]
  - Cholelithiasis [Not Recovered/Not Resolved]
  - Somnolence [Not Recovered/Not Resolved]

NARRATIVE: CASE EVENT DATE: 2017
